FAERS Safety Report 4274552-9 (Version None)
Quarter: 2004Q1

REPORT INFORMATION
  Report Type: 
  Country: None (occurrence: None)
  Receive Date: 20040120
  Receipt Date: 20040115
  Transmission Date: 20041129
  Serious: Yes (Hospitalization)
  Sender: FDA-Public Use
  Company Number: US-ROCHE-356154

PATIENT
  Age: 43 Year
  Sex: Female
  Weight: 66.2 kg

DRUGS (6)
  1. PEG-INTERFERON ALFA 2A (RO 25-8310) [Suspect]
     Route: 058
     Dates: start: 20030819, end: 20040105
  2. RIBAVIRIN [Suspect]
     Dosage: QAM AND QPM.
     Route: 048
     Dates: start: 20030819, end: 20040105
  3. TRAZODONE HCL [Concomitant]
  4. PROZAC [Concomitant]
  5. NEXIUM [Concomitant]
  6. MOBIC [Concomitant]

REACTIONS (2)
  - CONVULSION [None]
  - LOSS OF CONSCIOUSNESS [None]
